FAERS Safety Report 4705731-1 (Version None)
Quarter: 2005Q2

REPORT INFORMATION
  Report Type: 
  Country: None (occurrence: None)
  Receive Date: 20050629
  Receipt Date: 20050617
  Transmission Date: 20051028
  Serious: Yes (Death, Other)
  Sender: FDA-Public Use
  Company Number: 2005-BP-10655RO

PATIENT
  Age: 11 Month
  Sex: Male

DRUGS (3)
  1. CYCLOPHOSPHAMIDE [Suspect]
     Indication: GERM CELL CANCER
     Dosage: 2,100 MG/M2/DAY (2ND, 3RD, AND 4TH DAYS) Q3 WEEKS, IV
     Route: 042
  2. TOPOTECAN (TOPOTECAN) [Suspect]
     Indication: GERM CELL CANCER
     Dosage: 2 MG/M2/DAY (2ND + 3RD DAYS) INFUSION OVER 24 HOURS Q3 WEEKS, IV
     Route: 042
  3. UROMITEXAN (MESNA) (MESNA) [Suspect]
     Indication: GERM CELL CANCER

REACTIONS (2)
  - DISEASE PROGRESSION [None]
  - SEPTAL PANNICULITIS [None]
